FAERS Safety Report 9238769 (Version 1)
Quarter: 2013Q2

REPORT INFORMATION
  Report Type: Spontaneous
  Country: US (occurrence: None)
  Receive Date: 20130417
  Receipt Date: 20130417
  Transmission Date: 20140414
  Serious: Yes (Hospitalization)
  Sender: FDA-Public Use
  Company Number: None

PATIENT
  Age: 66 Year
  Sex: Female
  Weight: 84.37 kg

DRUGS (1)
  1. PACLITAXEL [Suspect]

REACTIONS (5)
  - Pain [None]
  - Asthenia [None]
  - Fatigue [None]
  - Syncope [None]
  - Musculoskeletal pain [None]
